FAERS Safety Report 11835086 (Version 1)
Quarter: 2015Q4

REPORT INFORMATION
  Report Type: Spontaneous
  Country: FR (occurrence: FR)
  Receive Date: 20151215
  Receipt Date: 20151215
  Transmission Date: 20160305
  Serious: Yes (Life-Threatening, Hospitalization)
  Sender: FDA-Public Use
  Company Number: FR-ROCHE-1676247

PATIENT
  Age: 73 Year
  Sex: Male

DRUGS (13)
  1. MABTHERA [Suspect]
     Active Substance: RITUXIMAB
     Indication: DIFFUSE LARGE B-CELL LYMPHOMA STAGE III
     Dosage: FIRST COURSE
     Route: 058
     Dates: start: 20150821
  2. VINCRISTINE [Suspect]
     Active Substance: VINCRISTINE
     Indication: DIFFUSE LARGE B-CELL LYMPHOMA STAGE III
     Dosage: FIRST COURSE
     Route: 042
     Dates: start: 20150814
  3. MONOPROST [Concomitant]
     Active Substance: LATANOPROST
     Route: 065
  4. COSOPT [Concomitant]
     Active Substance: DORZOLAMIDE HYDROCHLORIDE\TIMOLOL MALEATE
  5. MABTHERA [Suspect]
     Active Substance: RITUXIMAB
     Dosage: SECOND COURSE
     Route: 058
     Dates: start: 20150911
  6. ENDOXAN [Suspect]
     Active Substance: CYCLOPHOSPHAMIDE
     Indication: DIFFUSE LARGE B-CELL LYMPHOMA STAGE III
     Dosage: FIRST COURSE
     Route: 042
     Dates: start: 20150814
  7. ENDOXAN [Suspect]
     Active Substance: CYCLOPHOSPHAMIDE
     Dosage: SECOND COURSE
     Route: 042
     Dates: start: 20150911
  8. VINCRISTINE [Suspect]
     Active Substance: VINCRISTINE
     Dosage: SECOND COURSE
     Route: 042
     Dates: start: 20150911
  9. CORTANCYL [Suspect]
     Active Substance: PREDNISONE
     Indication: DIFFUSE LARGE B-CELL LYMPHOMA STAGE III
     Dosage: DAY 1 TO DAY 5.?FIRST COURSE
     Route: 048
     Dates: start: 20150814
  10. DOXORUBICINE [Suspect]
     Active Substance: DOXORUBICIN
     Indication: DIFFUSE LARGE B-CELL LYMPHOMA STAGE III
     Dosage: FIRST COURSE
     Route: 042
     Dates: start: 20150821
  11. DOXORUBICINE [Suspect]
     Active Substance: DOXORUBICIN
     Dosage: SECOND COURSE
     Route: 042
     Dates: start: 20150911
  12. COVERAM [Concomitant]
     Active Substance: AMLODIPINE\PERINDOPRIL
     Route: 065
  13. CORTANCYL [Suspect]
     Active Substance: PREDNISONE
     Dosage: DAY 1 TO DAY 5.?SECOND COURSE
     Route: 048
     Dates: start: 20150911

REACTIONS (3)
  - Lung disorder [Recovering/Resolving]
  - Pneumocystis jirovecii pneumonia [Recovering/Resolving]
  - Acute respiratory distress syndrome [Recovered/Resolved]

NARRATIVE: CASE EVENT DATE: 20151003
